FAERS Safety Report 12752920 (Version 2)
Quarter: 2016Q3

REPORT INFORMATION
  Report Type: Spontaneous
  Country: US (occurrence: US)
  Receive Date: 20160915
  Receipt Date: 20160926
  Transmission Date: 20161109
  Serious: Yes (Hospitalization)
  Sender: FDA-Public Use
  Company Number: US-ASTELLAS-2015US038446

PATIENT
  Sex: Male

DRUGS (3)
  1. XTANDI [Suspect]
     Active Substance: ENZALUTAMIDE
     Dosage: 120 MG (3 CAPSULES), ONCE DAILY
     Route: 048
     Dates: start: 20151215, end: 20160815
  2. XTANDI [Suspect]
     Active Substance: ENZALUTAMIDE
     Dosage: 80 MG (2 CAPSULES), ONCE DAILY
     Route: 048
     Dates: start: 201608
  3. XTANDI [Suspect]
     Active Substance: ENZALUTAMIDE
     Indication: PROSTATE CANCER
     Dosage: 160 MG (4 CAPSULES), ONCE DAILY
     Route: 048
     Dates: start: 20150826, end: 20151214

REACTIONS (5)
  - Arthralgia [Unknown]
  - Hypertension [Unknown]
  - Hernia repair [Unknown]
  - Myalgia [Unknown]
  - Fatigue [Unknown]
